FAERS Safety Report 9143342 (Version 1)
Quarter: 2013Q1

REPORT INFORMATION
  Report Type: Spontaneous
  Country: US (occurrence: US)
  Receive Date: 20130306
  Receipt Date: 20130306
  Transmission Date: 20140127
  Serious: No
  Sender: FDA-Public Use
  Company Number: US-ENDO PHARMACEUTICALS INC.-OPER20120381

PATIENT
  Age: 39 Year
  Sex: Male

DRUGS (2)
  1. OPANA ER 30MG [Suspect]
     Indication: BACK PAIN
     Route: 048
     Dates: start: 2011, end: 20120301
  2. OPANA ER 30MG [Suspect]
     Indication: PAIN IN EXTREMITY
     Route: 048
     Dates: start: 201203

REACTIONS (3)
  - Tremor [Recovered/Resolved]
  - Influenza like illness [Recovered/Resolved]
  - Chills [Recovered/Resolved]
